FAERS Safety Report 10062132 (Version 1)
Quarter: 2014Q1

REPORT INFORMATION
  Report Type: Spontaneous
  Country: US (occurrence: None)
  Receive Date: 20140312
  Receipt Date: 20140312
  Transmission Date: 20141002
  Serious: Yes (Other)
  Sender: FDA-Public Use
  Company Number: 1000046065

PATIENT
  Age: 35 Year
  Sex: Female
  Weight: 77.56 kg

DRUGS (7)
  1. SAVELLA [Suspect]
     Indication: FIBROMYALGIA
     Route: 048
     Dates: start: 20130416, end: 20130416
  2. SAVELLA [Suspect]
     Indication: FIBROMYALGIA
     Dosage: 100 MG (50 MG, 2 IN 1 D), ORAL
     Route: 048
     Dates: start: 20130423, end: 20130520
  3. EFFEXOR (VENLAFAXINE HYDROCHLORIDE) (VENLAFAXINE HYDROCHLORIDE) [Concomitant]
  4. SEROQUEL (QUETIAPINE FUMARATE) (QUETIAPINE FUMARATE) [Concomitant]
  5. LORTAB (ACETAMINOPHEN, HYDROCODONE) (ACETAMINOPHINE, HYDROCODONE) [Concomitant]
  6. IBUPROFEN (IBUPROFEN) (IBUPROFEN) [Concomitant]
  7. LIDODERM (LIDOCAINE) (LIDOCAINE) [Concomitant]

REACTIONS (1)
  - Convulsion [None]
